FAERS Safety Report 5289548-8 (Version None)
Quarter: 2007Q2

REPORT INFORMATION
  Report Type: 
  Country: None (occurrence: None)
  Receive Date: 20070406
  Receipt Date: 20070327
  Transmission Date: 20071010
  Serious: Yes (Other)
  Sender: FDA-Public Use
  Company Number: PHHO2007AR05594

PATIENT
  Age: 69 Year
  Sex: Female

DRUGS (1)
  1. ZELMAC / HTF 919A [Suspect]
     Indication: HIATUS HERNIA
     Dosage: 3 TABLETS DAILY
     Route: 048

REACTIONS (7)
  - CARDIAC OPERATION [None]
  - DYSPNOEA [None]
  - HIP FRACTURE [None]
  - HIP SURGERY [None]
  - INGUINAL HERNIA [None]
  - INGUINAL HERNIA REPAIR [None]
  - SWELLING [None]
